FAERS Safety Report 23843054 (Version 2)
Quarter: 2024Q3

REPORT INFORMATION
  Report Type: Spontaneous
  Country: US (occurrence: US)
  Receive Date: 20240510
  Receipt Date: 20240816
  Transmission Date: 20241017
  Serious: Yes (Other)
  Sender: LUNDBECK
  Company Number: US-LUNDBECK-DKLU3077809

PATIENT

DRUGS (6)
  1. SABRIL [Suspect]
     Active Substance: VIGABATRIN
     Dosage: 500 MILLIGRAM
     Dates: start: 20160301
  2. SABRIL [Suspect]
     Active Substance: VIGABATRIN
     Indication: Infantile spasms
  3. ONFI [Concomitant]
     Active Substance: CLOBAZAM
     Indication: Product used for unknown indication
  4. AFINITOR [Concomitant]
     Active Substance: EVEROLIMUS
     Indication: Product used for unknown indication
  5. TRILEPTAL [Concomitant]
     Active Substance: OXCARBAZEPINE
     Indication: Product used for unknown indication
  6. DIAZEPAM [Concomitant]
     Active Substance: DIAZEPAM
     Indication: Seizure

REACTIONS (3)
  - Drug withdrawal convulsions [Recovered/Resolved]
  - Clonic convulsion [Recovered/Resolved]
  - Product dose omission issue [Recovered/Resolved]
